FAERS Safety Report 7058524-7 (Version None)
Quarter: 2010Q4

REPORT INFORMATION
  Report Type: 
  Country: None (occurrence: None)
  Receive Date: 20101022
  Receipt Date: 20101015
  Transmission Date: 20110411
  Serious: Yes (Hospitalization)
  Sender: FDA-Public Use
  Company Number: A0764665A

PATIENT
  Age: 41 Year
  Sex: Male
  Weight: 87.7 kg

DRUGS (3)
  1. AVANDIA [Suspect]
     Dosage: 4MG TWICE PER DAY
     Route: 048
     Dates: start: 20051207, end: 20070123
  2. METFORMIN [Concomitant]
     Dates: start: 20050630
  3. GLARGINE [Concomitant]
     Dates: start: 20050902

REACTIONS (2)
  - CARDIAC FAILURE [None]
  - PAIN [None]
